FAERS Safety Report 9024959 (Version 1)
Quarter: 2013Q1

REPORT INFORMATION
  Report Type: Spontaneous
  Country: GB (occurrence: GB)
  Receive Date: 20130121
  Receipt Date: 20130121
  Transmission Date: 20140127
  Serious: Yes (Life-Threatening, Hospitalization)
  Sender: FDA-Public Use
  Company Number: PHHY2013GB002336

PATIENT
  Age: 50 Year
  Sex: Male
  Weight: 60 kg

DRUGS (3)
  1. VENLAFAXINE [Suspect]
     Indication: DEPRESSION
     Dosage: 300 MG
     Route: 048
  2. QUETIAPINE [Suspect]
     Indication: DEPRESSION
     Dosage: 100 MG
     Route: 048
  3. AGOMELATINE [Suspect]
     Indication: DEPRESSION
     Dosage: 50 MG
     Route: 048

REACTIONS (2)
  - Inappropriate antidiuretic hormone secretion [Not Recovered/Not Resolved]
  - Fall [Unknown]
